FAERS Safety Report 18526424 (Version 1)
Quarter: 2020Q4

REPORT INFORMATION
  Report Type: Spontaneous
  Country: US (occurrence: US)
  Receive Date: 20201120
  Receipt Date: 20201120
  Transmission Date: 20210114
  Serious: Yes (Death, Hospitalization, Other)
  Sender: FDA-Public Use
  Company Number: US-AUROBINDO-AUR-APL-2013-00391

PATIENT
  Age: 29 Year
  Sex: Female

DRUGS (2)
  1. PAROXETINE TABLETS USP 10MG [Suspect]
     Active Substance: PAROXETINE
     Indication: PRODUCT USED FOR UNKNOWN INDICATION
     Dosage: UNK
     Route: 048
  2. FLECAINIDE [Suspect]
     Active Substance: FLECAINIDE
     Indication: PRODUCT USED FOR UNKNOWN INDICATION
     Dosage: UNK
     Route: 048

REACTIONS (9)
  - Ventricular tachycardia [Fatal]
  - Generalised oedema [Unknown]
  - Central nervous system necrosis [Unknown]
  - Toxicity to various agents [Fatal]
  - Haemorrhage intracranial [Fatal]
  - Intentional overdose [Fatal]
  - Electrocardiogram abnormal [Unknown]
  - Completed suicide [Fatal]
  - Cardiac arrest [Unknown]
